FAERS Safety Report 10199462 (Version 1)
Quarter: 2014Q2

REPORT INFORMATION
  Report Type: Spontaneous
  Country: US (occurrence: US)
  Receive Date: 20140527
  Receipt Date: 20140527
  Transmission Date: 20141212
  Serious: No
  Sender: FDA-Public Use
  Company Number: US-NOVEN-14US008679

PATIENT
  Age: 6 Year
  Sex: Male

DRUGS (2)
  1. DAYTRANA [Suspect]
     Indication: ATTENTION DEFICIT/HYPERACTIVITY DISORDER
     Dosage: 10 MG, UNK
     Route: 062
     Dates: start: 201301, end: 201303
  2. DAYTRANA [Suspect]
     Dosage: 10 MG, 1/2 PATCH DAILY
     Route: 062
     Dates: start: 201309

REACTIONS (6)
  - Mood swings [Recovered/Resolved]
  - Off label use [Recovered/Resolved]
  - Drug effect increased [Recovered/Resolved]
  - Wrong technique in drug usage process [Not Recovered/Not Resolved]
  - Drug prescribing error [Not Recovered/Not Resolved]
  - Product quality issue [Unknown]
